FAERS Safety Report 16031398 (Version 2)
Quarter: 2019Q3

REPORT INFORMATION
  Report Type: Spontaneous
  Country: US (occurrence: US)
  Receive Date: 20190304
  Receipt Date: 20190806
  Transmission Date: 20191004
  Serious: Yes (Death, Other)
  Sender: FDA-Public Use
  Company Number: US-INCYTE CORPORATION-2019IN001710

PATIENT

DRUGS (2)
  1. JAKAFI [Suspect]
     Active Substance: RUXOLITINIB
     Dosage: 5 MILLIGRAM, 3X/WEEK
     Route: 048
     Dates: start: 20160223
  2. JAKAFI [Suspect]
     Active Substance: RUXOLITINIB
     Indication: END STAGE RENAL DISEASE
     Dosage: 20 MG, 3X/WEEK
     Route: 048
     Dates: start: 20160223

REACTIONS (3)
  - Inappropriate schedule of product administration [Unknown]
  - Off label use [Unknown]
  - Death [Fatal]

NARRATIVE: CASE EVENT DATE: 20160223
